FAERS Safety Report 22058977 (Version 2)
Quarter: 2023Q1

REPORT INFORMATION
  Report Type: Spontaneous
  Country: US (occurrence: US)
  Receive Date: 20230303
  Receipt Date: 20230321
  Transmission Date: 20230418
  Serious: No
  Sender: FDA-Public Use
  Company Number: US-Ipsen Biopharmaceuticals, Inc.-2023-03425

PATIENT
  Age: 53 Year
  Sex: Female

DRUGS (3)
  1. DYSPORT [Suspect]
     Active Substance: ABOBOTULINUMTOXINA
     Indication: Skin cosmetic procedure
     Dosage: TOTAL UNITS: 40, 2.5ML
     Route: 065
     Dates: start: 20221115, end: 20221115
  2. LYRICA [Concomitant]
     Active Substance: PREGABALIN
     Indication: Fibromyalgia
  3. LISINOPRIL [Concomitant]
     Active Substance: LISINOPRIL
     Indication: Hypertension

REACTIONS (10)
  - Eyelids pruritus [Recovered/Resolved]
  - Eye swelling [Recovered/Resolved]
  - Eyelid ptosis [Recovered/Resolved]
  - Dry skin [Recovered/Resolved]
  - Skin wrinkling [Recovered/Resolved]
  - Pruritus [Recovered/Resolved]
  - Skin tightness [Recovered/Resolved]
  - Micturition urgency [Recovered/Resolved]
  - Rash [Recovered/Resolved]
  - Off label use [Unknown]

NARRATIVE: CASE EVENT DATE: 20221120
